FAERS Safety Report 6659494-3 (Version None)
Quarter: 2010Q1

REPORT INFORMATION
  Report Type: 
  Country: None (occurrence: None)
  Receive Date: 20100330
  Receipt Date: 20100319
  Transmission Date: 20100710
  Serious: Yes (Death, Other)
  Sender: FDA-Public Use
  Company Number: US-BAXTER-2010BH007709

PATIENT
  Sex: Male

DRUGS (1)
  1. DIANEAL [Suspect]
     Indication: PERITONEAL DIALYSIS
     Route: 033
     Dates: start: 20070807

REACTIONS (2)
  - DEATH [None]
  - PERITONITIS [None]
